FAERS Safety Report 24840492 (Version 1)
Quarter: 2025Q1

REPORT INFORMATION
  Report Type: Spontaneous
  Country: CN (occurrence: CN)
  Receive Date: 20250114
  Receipt Date: 20250114
  Transmission Date: 20250409
  Serious: Yes (Hospitalization, Other)
  Sender: BAYER HEALTHCARE PHARMACEUTICALS INC.
  Company Number: CN-BAYER-2025A005478

PATIENT
  Age: 52 Year
  Sex: Male
  Weight: 90 kg

DRUGS (1)
  1. AVELOX [Suspect]
     Active Substance: MOXIFLOXACIN HYDROCHLORIDE
     Indication: Pneumonia
     Dosage: 0.4 G, QD
     Route: 048
     Dates: start: 20241212, end: 20241225

REACTIONS (13)
  - Toxic epidermal necrolysis [Recovering/Resolving]
  - Pain [Recovering/Resolving]
  - Pyrexia [Recovering/Resolving]
  - Blister [Recovering/Resolving]
  - Skin erosion [Recovering/Resolving]
  - Oral mucosa erosion [Recovering/Resolving]
  - Tongue erosion [Recovering/Resolving]
  - Eyelid erosion [Recovering/Resolving]
  - Drug hypersensitivity [Recovering/Resolving]
  - Ocular hyperaemia [Recovering/Resolving]
  - Skin ulcer [Recovering/Resolving]
  - Oral mucosal erythema [Recovering/Resolving]
  - Tongue erythema [Recovering/Resolving]

NARRATIVE: CASE EVENT DATE: 20241228
